FAERS Safety Report 5723012-4 (Version None)
Quarter: 2008Q2

REPORT INFORMATION
  Report Type: 
  Country: None (occurrence: None)
  Receive Date: 20080428
  Receipt Date: 20080428
  Transmission Date: 20081010
  Serious: Yes (Death)
  Sender: FDA-Public Use
  Company Number: None

PATIENT
  Age: 61 Year
  Sex: Male
  Weight: 68.0396 kg

DRUGS (3)
  1. OXYCONTIN [Suspect]
     Indication: BACK PAIN
     Dosage: 30MG BID PO
     Route: 048
     Dates: start: 20070227, end: 20070228
  2. OXYCONTIN [Suspect]
     Indication: FALL
     Dosage: 30MG BID PO
     Route: 048
     Dates: start: 20070227, end: 20070228
  3. OXYCONTIN [Suspect]

REACTIONS (2)
  - DRUG TOLERANCE DECREASED [None]
  - NO REACTION ON PREVIOUS EXPOSURE TO DRUG [None]
